FAERS Safety Report 17115604 (Version 1)
Quarter: 2019Q4

REPORT INFORMATION
  Report Type: Spontaneous
  Country: IN (occurrence: IN)
  Receive Date: 20191205
  Receipt Date: 20191205
  Transmission Date: 20200122
  Serious: Yes (Other)
  Sender: FDA-Public Use
  Company Number: IN-PFIZER INC-2019307720

PATIENT
  Age: 71 Year
  Sex: Female

DRUGS (2)
  1. FOLVITE [FOLIC ACID] [Concomitant]
     Dosage: UNK UNK, MONTHLY (FOR 3 MONTHS)
  2. PALBACE [Suspect]
     Active Substance: PALBOCICLIB
     Indication: BREAST CANCER METASTATIC
     Dosage: 125 MG, CYCLIC (ONCE DAILY 3 WEEKS ON, 1 WEEK OFF)
     Route: 048
     Dates: start: 20170822

REACTIONS (4)
  - Pleural thickening [Unknown]
  - Pulmonary oedema [Unknown]
  - Dry skin [Unknown]
  - Pain in extremity [Unknown]
